FAERS Safety Report 11619313 (Version 1)
Quarter: 2015Q4

REPORT INFORMATION
  Report Type: Spontaneous
  Country: IT (occurrence: IT)
  Receive Date: 20151012
  Receipt Date: 20151012
  Transmission Date: 20160304
  Serious: Yes (Hospitalization)
  Sender: FDA-Public Use
  Company Number: IT-BAUSCH-BL-2015-023350

PATIENT
  Age: 80 Year
  Sex: Female

DRUGS (2)
  1. CARTEOL [Suspect]
     Active Substance: CARTEOLOL
     Indication: GLAUCOMA
     Route: 065
  2. TILDIEM [Suspect]
     Active Substance: DILTIAZEM HYDROCHLORIDE
     Indication: ANGINA PECTORIS
     Route: 048
     Dates: start: 200005, end: 20000713

REACTIONS (2)
  - Asthenia [Recovered/Resolved]
  - Nodal rhythm [Recovered/Resolved]

NARRATIVE: CASE EVENT DATE: 20000713
